FAERS Safety Report 23626555 (Version 2)
Quarter: 2024Q1

REPORT INFORMATION
  Report Type: Report from Study
  Country: US (occurrence: US)
  Receive Date: 20240313
  Receipt Date: 20240327
  Transmission Date: 20240410
  Serious: No
  Sender: FDA-Public Use
  Company Number: US-AGIOS-2403US03682

PATIENT
  Sex: Male

DRUGS (1)
  1. MITAPIVAT [Suspect]
     Active Substance: MITAPIVAT
     Indication: Haemolytic anaemia enzyme specific
     Dosage: 50 MILLIGRAM, BID
     Route: 048
     Dates: start: 20220812

REACTIONS (5)
  - Back pain [Unknown]
  - Decreased activity [Unknown]
  - Pain [Unknown]
  - Dyspnoea [Unknown]
  - Haemoglobin decreased [Unknown]
